FAERS Safety Report 25574109 (Version 1)
Quarter: 2025Q3

REPORT INFORMATION
  Report Type: Spontaneous
  Country: CN (occurrence: CN)
  Receive Date: 20250717
  Receipt Date: 20250717
  Transmission Date: 20251020
  Serious: Yes (Hospitalization, Other)
  Sender: PURDUE
  Company Number: CN-NAPPMUNDI-GBR-2025-0127243

PATIENT
  Age: 60 Year
  Sex: Female

DRUGS (4)
  1. OXYCODONE HYDROCHLORIDE [Interacting]
     Active Substance: OXYCODONE HYDROCHLORIDE
     Indication: Cancer pain
     Dosage: 100 MILLIGRAM, Q12H
     Route: 048
     Dates: end: 20250623
  2. OXYCODONE HYDROCHLORIDE [Interacting]
     Active Substance: OXYCODONE HYDROCHLORIDE
     Dosage: 120 MILLIGRAM, BID
     Route: 048
     Dates: start: 20250624, end: 20250624
  3. MORPHINE HYDROCHLORIDE [Suspect]
     Active Substance: MORPHINE HYDROCHLORIDE
     Indication: Breakthrough pain
     Dosage: 40 MILLIGRAM, DAILY
     Route: 048
     Dates: start: 20250624, end: 20250624
  4. ESTAZOLAM [Interacting]
     Active Substance: ESTAZOLAM
     Indication: Sleep disorder
     Dosage: 1 MILLIGRAM, DAILY
     Route: 048
     Dates: start: 20250624, end: 20250624

REACTIONS (4)
  - Somnolence [Recovering/Resolving]
  - Sopor [Recovering/Resolving]
  - Miosis [Recovering/Resolving]
  - Labelled drug-drug interaction issue [Unknown]

NARRATIVE: CASE EVENT DATE: 20250624
